FAERS Safety Report 5774308-1 (Version None)
Quarter: 2008Q2

REPORT INFORMATION
  Report Type: 
  Country: None (occurrence: None)
  Receive Date: 20080616
  Receipt Date: 20080604
  Transmission Date: 20081010
  Serious: Yes (Other)
  Sender: FDA-Public Use
  Company Number: US-PFIZER INC-2006119137

PATIENT
  Sex: Female
  Weight: 68 kg

DRUGS (12)
  1. CHANTIX [Suspect]
     Indication: SMOKING CESSATION THERAPY
     Dates: start: 20060901, end: 20060929
  2. BETASERON [Suspect]
     Dosage: TEXT:8 MIU-FREQ:EVERY 2 DAYS
     Route: 058
  3. LIPITOR [Concomitant]
     Route: 048
  4. SYNTHROID [Concomitant]
     Route: 048
  5. NEURONTIN [Concomitant]
     Route: 048
  6. PAXIL [Concomitant]
  7. XANAX [Concomitant]
     Route: 048
  8. PROVIGIL [Concomitant]
     Route: 048
  9. IBANDRONATE SODIUM [Concomitant]
  10. VICODIN [Concomitant]
     Route: 048
  11. AMBIEN [Concomitant]
     Route: 048
  12. CYMBALTA [Concomitant]
     Route: 048

REACTIONS (7)
  - DIPLOPIA [None]
  - FACIAL PALSY [None]
  - HYPERTENSION [None]
  - HYPOAESTHESIA [None]
  - HYPOAESTHESIA FACIAL [None]
  - MULTIPLE SCLEROSIS [None]
  - VERTIGO [None]
